FAERS Safety Report 9460512 (Version 1)
Quarter: 2013Q3

REPORT INFORMATION
  Report Type: Spontaneous
  Country: US (occurrence: US)
  Receive Date: 20130815
  Receipt Date: 20130815
  Transmission Date: 20140515
  Serious: No
  Sender: FDA-Public Use
  Company Number: US-009507513-1308USA006255

PATIENT
  Sex: Female

DRUGS (4)
  1. CLARITIN [Suspect]
     Indication: OCULAR HYPERAEMIA
     Dosage: UNK, UNKNOWN
     Route: 048
  2. CLARITIN [Suspect]
     Indication: THROAT IRRITATION
  3. CLARITIN [Suspect]
     Indication: RHINORRHOEA
  4. CLARITIN [Suspect]
     Indication: HYPERSENSITIVITY

REACTIONS (2)
  - Headache [Unknown]
  - Nausea [Unknown]
